FAERS Safety Report 14881678 (Version 5)
Quarter: 2020Q3

REPORT INFORMATION
  Report Type: Spontaneous
  Country: CA (occurrence: CA)
  Receive Date: 20180511
  Receipt Date: 20200811
  Transmission Date: 20201102
  Serious: Yes (Other)
  Sender: FDA-Public Use
  Company Number: CA-PFIZER INC-2018192418

PATIENT
  Age: 50 Year
  Sex: Female

DRUGS (5)
  1. CO QUETIAPINE [Suspect]
     Active Substance: QUETIAPINE FUMARATE
     Dosage: 1200 MG (1200 MILLIGRAM)
  2. ARIPIPRAZOLE. [Suspect]
     Active Substance: ARIPIPRAZOLE
     Indication: SCHIZOPHRENIA
     Dosage: 5 MG, 1X/DAY (5 MILLIGRAM, QD)
  3. QUETIAPINE [QUETIAPINE FUMARATE] [Suspect]
     Active Substance: QUETIAPINE FUMARATE
     Dosage: UNK
  4. PANTOPRAZOLE [Suspect]
     Active Substance: PANTOPRAZOLE
     Dosage: UNK
  5. ARIPIPRAZOLE. [Suspect]
     Active Substance: ARIPIPRAZOLE
     Dosage: 5 MG (5 MILLIGRAM)

REACTIONS (1)
  - Pancreatitis [Recovered/Resolved]
